FAERS Safety Report 6288730-0 (Version None)
Quarter: 2009Q3

REPORT INFORMATION
  Report Type: 
  Country: None (occurrence: None)
  Receive Date: 20090729
  Receipt Date: 20090722
  Transmission Date: 20100115
  Serious: Yes (Death, Other)
  Sender: FDA-Public Use
  Company Number: JP-BRISTOL-MYERS SQUIBB COMPANY-14715163

PATIENT
  Age: 47 Year
  Sex: Male

DRUGS (2)
  1. FUNGIZONE [Suspect]
     Indication: LYMPHOMA
     Route: 042
  2. IMIPENEM AND CILASTATIN SODIUM [Suspect]
     Indication: LYMPHOMA

REACTIONS (2)
  - RESPIRATORY DISORDER [None]
  - STEVENS-JOHNSON SYNDROME [None]
